FAERS Safety Report 18203870 (Version 1)
Quarter: 2020Q3

REPORT INFORMATION
  Report Type: Spontaneous
  Country: BR (occurrence: BR)
  Receive Date: 20200827
  Receipt Date: 20200827
  Transmission Date: 20201103
  Serious: Yes (Other)
  Sender: FDA-Public Use
  Company Number: NVSC2020BR226476

PATIENT
  Age: 54 Year
  Sex: Female
  Weight: 74 kg

DRUGS (1)
  1. HEMITARTARATO DE ZOLPIDEM [Suspect]
     Active Substance: ZOLPIDEM TARTRATE
     Indication: SLEEP DISORDER
     Dosage: 1 DF, QD (USE FOR ONE MONTH)
     Route: 048
     Dates: start: 202006

REACTIONS (5)
  - Disease recurrence [Recovering/Resolving]
  - Intentional overdose [Unknown]
  - Somnolence [Recovered/Resolved]
  - Syncope [Recovered/Resolved]
  - Inappropriate schedule of product administration [Recovered/Resolved]

NARRATIVE: CASE EVENT DATE: 20200811
